FAERS Safety Report 13363108 (Version 10)
Quarter: 2018Q1

REPORT INFORMATION
  Report Type: Report from Study
  Country: US (occurrence: US)
  Receive Date: 20170323
  Receipt Date: 20180119
  Transmission Date: 20180508
  Serious: Yes (Other)
  Sender: FDA-Public Use
  Company Number: US-ALEXION-A201702682

PATIENT
  Sex: Male
  Weight: 52.8 kg

DRUGS (1)
  1. STRENSIQ [Suspect]
     Active Substance: ASFOTASE ALFA
     Indication: HYPOPHOSPHATASIA
     Dosage: 1 MG/KG, SIX TIMES/WEEK
     Route: 058
     Dates: start: 20160105

REACTIONS (10)
  - Back pain [Unknown]
  - Vitamin D decreased [Unknown]
  - Blood calcium decreased [Unknown]
  - Osteomalacia [Unknown]
  - Fracture [Recovering/Resolving]
  - Scoliosis [Unknown]
  - Drug ineffective [Unknown]
  - Procedural complication [Recovered/Resolved]
  - Blood alkaline phosphatase increased [Unknown]
  - Lipohypertrophy [Unknown]

NARRATIVE: CASE EVENT DATE: 201611
